FAERS Safety Report 8567681-2 (Version None)
Quarter: 2012Q3

REPORT INFORMATION
  Report Type: 
  Country: None (occurrence: None)
  Receive Date: 20120803
  Receipt Date: 20120723
  Transmission Date: 20120928
  Serious: Yes (Hospitalization)
  Sender: FDA-Public Use
  Company Number: US-ELI_LILLY_AND_COMPANY-US201206007389

PATIENT
  Sex: Female

DRUGS (16)
  1. ZYPREXA [Suspect]
     Dosage: 5 MG, PRN
  2. ZYPREXA [Suspect]
     Indication: BIPOLAR DISORDER
     Dosage: 10 MG, EACH EVENING
     Dates: start: 20111227
  3. COUMADIN [Concomitant]
     Dosage: 15 MG, EACH EVENING
  4. OMEPRAZOLE [Concomitant]
     Dosage: 20 MG, QD
  5. PROZAC [Concomitant]
     Dosage: 40 MG, BID
  6. LIOTHYRONINE SODIUM [Concomitant]
     Dosage: 25 UG, QD
  7. TEGRETOL [Concomitant]
     Dosage: 200 MG, BID
  8. HALDOL [Concomitant]
     Indication: DYSPHORIA
     Dosage: 2 MG, PRN
  9. RESPERAL [Concomitant]
     Dosage: 3 MG, PRN
  10. REMERON [Concomitant]
     Dosage: 45 MG, EACH EVENING
  11. ATIVAN [Concomitant]
     Indication: PANIC ATTACK
     Dosage: 2 MG, PRN
  12. ATENOLOL [Concomitant]
     Dosage: 25 MG, QD
  13. BUSPAR [Concomitant]
     Dosage: 15 MG, BID
  14. REQUIP [Concomitant]
     Dosage: 4 MG, EACH EVENING
  15. ADDERALL 5 [Concomitant]
     Dosage: 20 MG, BID
  16. ADDERALL 5 [Concomitant]
     Dosage: 30 MG, BID

REACTIONS (3)
  - PANIC ATTACK [None]
  - HYPERVENTILATION [None]
  - GASTRIC BYPASS [None]
